FAERS Safety Report 8592816-5 (Version None)
Quarter: 2012Q3

REPORT INFORMATION
  Report Type: 
  Country: None (occurrence: None)
  Receive Date: 20120814
  Receipt Date: 20120810
  Transmission Date: 20120928
  Serious: Yes (Death, Hospitalization)
  Sender: FDA-Public Use
  Company Number: US-ASTRAZENECA-2012SE38810

PATIENT
  Age: 52 Year
  Sex: Female
  Weight: 95.3 kg

DRUGS (2)
  1. NEXIUM [Suspect]
     Indication: GASTROOESOPHAGEAL REFLUX DISEASE
     Route: 048
  2. MEDICATIONS [Concomitant]

REACTIONS (9)
  - DYSPNOEA [None]
  - DEATH [None]
  - DEHYDRATION [None]
  - ABDOMINAL NEOPLASM [None]
  - OEDEMA PERIPHERAL [None]
  - ABDOMINAL DISTENSION [None]
  - BLOOD POTASSIUM ABNORMAL [None]
  - DIARRHOEA [None]
  - VOMITING [None]
